FAERS Safety Report 15364423 (Version 1)
Quarter: 2018Q3

REPORT INFORMATION
  Report Type: Spontaneous
  Country: CN (occurrence: CN)
  Receive Date: 20180909
  Receipt Date: 20180909
  Transmission Date: 20181010
  Serious: Yes (Hospitalization)
  Sender: FDA-Public Use
  Company Number: CN-BAXTER-2018BAX022977

PATIENT
  Age: 58 Year
  Sex: Female
  Weight: 48 kg

DRUGS (2)
  1. 20% MANNITOL INJECTION [Suspect]
     Active Substance: MANNITOL
     Indication: BOWEL PREPARATION
     Route: 048
     Dates: start: 20180717, end: 20180717
  2. 20% MANNITOL INJECTION [Suspect]
     Active Substance: MANNITOL
     Indication: INTESTINAL OPERATION

REACTIONS (7)
  - Hyponatraemia [Recovered/Resolved]
  - Muscular weakness [Unknown]
  - Hypokalaemia [Recovered/Resolved]
  - Tic [Recovered/Resolved]
  - Seizure [Recovered/Resolved]
  - Loss of consciousness [Recovered/Resolved]
  - Foaming at mouth [Unknown]

NARRATIVE: CASE EVENT DATE: 20180717
